FAERS Safety Report 5127787-7 (Version None)
Quarter: 2006Q4

REPORT INFORMATION
  Report Type: 
  Country: None (occurrence: None)
  Receive Date: 20061016
  Receipt Date: 20060913
  Transmission Date: 20070319
  Serious: Yes (Hospitalization)
  Sender: FDA-Public Use
  Company Number: AT-ROCHE-463155

PATIENT
  Age: 52 Year
  Sex: Male
  Weight: 106.7 kg

DRUGS (3)
  1. PEG-INTERFERON ALFA 2A (RO 25-8310) [Suspect]
     Dosage: DOSAGE FORM REPORTED AS SYRINGE.
     Route: 058
     Dates: start: 20060214
  2. RIBAVIRIN [Suspect]
     Dosage: TWO IN THE MORNING, THREE IN THE EVENING. FREQUENCY REPORTED AS 2/0/3.
     Route: 048
     Dates: start: 20060214
  3. UROSIN [Concomitant]
     Dates: start: 20060509

REACTIONS (1)
  - DEEP VEIN THROMBOSIS [None]
